FAERS Safety Report 9659437 (Version 2)
Quarter: 2013Q4

REPORT INFORMATION
  Report Type: Spontaneous
  Country: US (occurrence: US)
  Receive Date: 20131031
  Receipt Date: 20131031
  Transmission Date: 20140711
  Serious: Yes (Other)
  Sender: FDA-Public Use
  Company Number: US-JNJFOC-20131014317

PATIENT
  Sex: 0

DRUGS (8)
  1. USTEKINUMAB [Suspect]
     Indication: PSORIASIS
     Dosage: WEEK 0, 4 AND THEN EVERY 12 WEEKS
     Route: 058
  2. METHOTREXATE [Suspect]
     Indication: PSORIASIS
     Dosage: 7.5 MG TO 15 MG EVERY WEEK
     Route: 065
  3. METHOTREXATE [Suspect]
     Indication: PSORIATIC ARTHROPATHY
     Dosage: 7.5 MG TO 15 MG EVERY WEEK
     Route: 065
  4. CYCLOSPORINE [Suspect]
     Indication: PSORIASIS
     Dosage: 2 TO 5MG/KG
     Route: 065
  5. ETANERCEPT [Suspect]
     Indication: PSORIASIS
     Dosage: 2 TO 5MG/KG
     Route: 065
  6. ADALIMUMAB [Suspect]
     Indication: PSORIASIS
     Dosage: 2 TO 5MG/KG
     Route: 065
  7. ACITRETIN [Suspect]
     Indication: SKIN CANCER
     Dosage: 10 TO 25 MG DAILY
     Route: 065
  8. ACITRETIN [Suspect]
     Indication: PSORIASIS
     Dosage: 10 TO 25 MG DAILY
     Route: 065

REACTIONS (17)
  - Squamous cell carcinoma [Unknown]
  - Basal cell carcinoma [Unknown]
  - Squamous cell carcinoma [Unknown]
  - Blood creatinine increased [Recovered/Resolved]
  - Nephropathy toxic [Unknown]
  - Blood triglycerides increased [Unknown]
  - Lipids abnormal [Unknown]
  - Hypertension [Recovered/Resolved]
  - Gastritis [Unknown]
  - Bronchitis [Unknown]
  - Mucosal inflammation [Unknown]
  - Cheilitis [Unknown]
  - Leukocytosis [Recovered/Resolved]
  - Anaemia [Recovered/Resolved]
  - Upper respiratory tract infection [Recovered/Resolved]
  - Nausea [Unknown]
  - Fatigue [Unknown]
